FAERS Safety Report 8932933 (Version 1)
Quarter: 2012Q4

REPORT INFORMATION
  Report Type: 
  Country: LB (occurrence: LB)
  Receive Date: 20121129
  Receipt Date: 20121129
  Transmission Date: 20130627
  Serious: Yes (Hospitalization)
  Sender: FDA-Public Use
  Company Number: LB-SANOFI-AVENTIS-2012SA085829

PATIENT
  Age: 58 Year
  Sex: Female

DRUGS (6)
  1. LANTUS SOLOSTAR [Suspect]
     Indication: DIABETIC
     Dosage: Dose:25 unit(s)
     Route: 058
     Dates: start: 20121101
  2. SOLOSTAR [Suspect]
     Indication: DEVICE THERAPY
     Dates: start: 20121101
  3. NOVONORM [Suspect]
     Indication: DIABETIC
     Route: 048
  4. BURINEX [Concomitant]
  5. ATORVASTATIN [Concomitant]
  6. ATACAND [Concomitant]

REACTIONS (1)
  - Cardiac failure [Recovering/Resolving]
